FAERS Safety Report 16663830 (Version 1)
Quarter: 2019Q3

REPORT INFORMATION
  Report Type: Spontaneous
  Country: FR (occurrence: FR)
  Receive Date: 20190802
  Receipt Date: 20190802
  Transmission Date: 20191004
  Serious: Yes (Death, Hospitalization)
  Sender: FDA-Public Use
  Company Number: FR-MYLANLABS-2019M1072442

PATIENT
  Age: 61 Year
  Sex: Male
  Weight: 92 kg

DRUGS (16)
  1. VEPESIDE [Suspect]
     Active Substance: ETOPOSIDE
     Indication: SMALL CELL LUNG CANCER METASTATIC
     Dosage: 150 MILLIGRAM, QD
     Route: 041
     Dates: start: 20090216, end: 20090218
  2. FASTURTEC [Concomitant]
     Active Substance: RASBURICASE
     Dosage: 18.5 MILLIGRAM, TOTAL
     Route: 042
     Dates: start: 20090219
  3. CONTRAMAL [Concomitant]
     Active Substance: TRAMADOL HYDROCHLORIDE
     Dosage: 50 MILLIGRAM, QD
  4. CONTRAMAL [Concomitant]
     Active Substance: TRAMADOL HYDROCHLORIDE
     Dosage: 100 MILLIGRAM, QD
  5. TAZOCILLINE [Concomitant]
     Active Substance: PIPERACILLIN SODIUM\TAZOBACTAM SODIUM
     Dosage: 4 GRAM, QD
     Route: 042
     Dates: start: 20090222, end: 20090228
  6. NEULASTA [Concomitant]
     Active Substance: PEGFILGRASTIM
     Dosage: UNK
     Route: 058
     Dates: start: 20090218
  7. FUROSEMIDE. [Concomitant]
     Active Substance: FUROSEMIDE
     Dosage: 40 MILLIGRAM, QD
  8. CRESTOR [Concomitant]
     Active Substance: ROSUVASTATIN CALCIUM
     Dosage: 5 MILLIGRAM, QD
  9. DOSTINEX [Concomitant]
     Active Substance: CABERGOLINE
     Dosage: 0.5 MILLIGRAM, QD
     Route: 048
     Dates: start: 20090219, end: 20090228
  10. AMIKACIN. [Concomitant]
     Active Substance: AMIKACIN
     Dosage: 1.5 GRAM, QD
     Route: 042
     Dates: start: 20090222, end: 20090228
  11. CARBOPLATIN. [Suspect]
     Active Substance: CARBOPLATIN
     Indication: SMALL CELL LUNG CANCER METASTATIC
     Dosage: UNK
     Route: 042
     Dates: start: 20090216, end: 20090216
  12. TAVANIC [Concomitant]
     Active Substance: LEVOFLOXACIN
     Dosage: UNK UNK, TOTAL
     Dates: start: 20090216
  13. TRIFLUCAN [Concomitant]
     Active Substance: FLUCONAZOLE
     Dosage: UNK
     Route: 042
     Dates: start: 20090222, end: 20090227
  14. TIAPRIDAL [Concomitant]
     Active Substance: TIAPRIDE HYDROCHLORIDE
     Dosage: 100 MILLIGRAM, QD
     Route: 042
     Dates: start: 20090223, end: 20090223
  15. INIPOMP [Concomitant]
     Active Substance: PANTOPRAZOLE SODIUM
     Dosage: UNK
     Route: 048
     Dates: start: 20090212, end: 20090227
  16. ATARAX [Concomitant]
     Active Substance: HYDROXYZINE HYDROCHLORIDE
     Indication: PRODUCT USED FOR UNKNOWN INDICATION
     Dosage: 200 MILLIGRAM, QD
     Route: 042
     Dates: start: 20090223, end: 20090227

REACTIONS (3)
  - Pancytopenia [Fatal]
  - Febrile bone marrow aplasia [Fatal]
  - Pyrexia [Fatal]

NARRATIVE: CASE EVENT DATE: 20090222
